FAERS Safety Report 17859110 (Version 5)
Quarter: 2022Q1

REPORT INFORMATION
  Report Type: Report from Study
  Country: US (occurrence: US)
  Receive Date: 20200604
  Receipt Date: 20220322
  Transmission Date: 20220424
  Serious: Yes (Other)
  Sender: FDA-Public Use
  Company Number: US-SHIRE-US202018354

PATIENT
  Sex: Female
  Weight: 71 kg

DRUGS (18)
  1. HUMAN IMMUNOGLOBULIN G [Suspect]
     Active Substance: HUMAN IMMUNOGLOBULIN G
     Indication: Chronic inflammatory demyelinating polyradiculoneuropathy
     Dosage: 35 GRAM
     Route: 042
     Dates: start: 20160323
  2. HUMAN IMMUNOGLOBULIN G [Suspect]
     Active Substance: HUMAN IMMUNOGLOBULIN G
     Indication: Congenital neuropathy
  3. HUMAN IMMUNOGLOBULIN G [Suspect]
     Active Substance: HUMAN IMMUNOGLOBULIN G
     Indication: Neuropathy peripheral
  4. OMEPRAZOLE [Concomitant]
     Active Substance: OMEPRAZOLE
  5. DIPHENHYDRAMINE [Concomitant]
     Active Substance: DIPHENHYDRAMINE
  6. SODIUM CHLORIDE [Concomitant]
     Active Substance: SODIUM CHLORIDE
  7. EPINEPHRINE [Concomitant]
     Active Substance: EPINEPHRINE
  8. ATORVASTATIN [Concomitant]
     Active Substance: ATORVASTATIN
  9. ASPIRIN [Concomitant]
     Active Substance: ASPIRIN
  10. CALCIUM 600 PLUS VITAMIN D3 [Concomitant]
  11. METOPROLOL [Concomitant]
     Active Substance: METOPROLOL
  12. ALEVE [Concomitant]
     Active Substance: NAPROXEN SODIUM
  13. FOLBEE PLUS [Concomitant]
  14. GABAPENTIN [Concomitant]
     Active Substance: GABAPENTIN
  15. LEVOTHYROXINE [Concomitant]
     Active Substance: LEVOTHYROXINE
  16. VITAMIN E [Concomitant]
     Active Substance: .ALPHA.-TOCOPHEROL
  17. VITAMIN C [Concomitant]
     Active Substance: ASCORBIC ACID
  18. MODERNA COVID-19 VACCINE [Concomitant]
     Active Substance: ELASOMERAN

REACTIONS (9)
  - Lyme disease [Unknown]
  - Eructation [Recovering/Resolving]
  - Infusion related reaction [Recovered/Resolved]
  - Unevaluable event [Unknown]
  - Nausea [Unknown]
  - Back pain [Unknown]
  - Vomiting [Recovered/Resolved]
  - Tremor [Recovered/Resolved]
  - Asthenia [Recovered/Resolved]
